FAERS Safety Report 8116445-2 (Version None)
Quarter: 2012Q1

REPORT INFORMATION
  Report Type: 
  Country: None (occurrence: None)
  Receive Date: 20120206
  Receipt Date: 20120131
  Transmission Date: 20120608
  Serious: Yes (Death, Hospitalization)
  Sender: FDA-Public Use
  Company Number: US-ACTELION-A-NJ2011-55454

PATIENT

DRUGS (15)
  1. SYMBICORT [Concomitant]
  2. ASCORBIC ACID [Concomitant]
  3. VITAMIN E [Concomitant]
  4. LASIX [Concomitant]
  5. ENOXAPARIN [Concomitant]
  6. TRACLEER [Suspect]
     Indication: PULMONARY ARTERIAL HYPERTENSION
     Dosage: 62.5 MG, BID
     Route: 048
     Dates: start: 20110101, end: 20111103
  7. LANOXIN [Concomitant]
  8. VITAMIN B COMPLEX CAP [Concomitant]
  9. ALDACTONE [Concomitant]
  10. HYDROMORPHONE HCL [Concomitant]
  11. MAGNESIUM [Concomitant]
  12. OXYCODONE HCL [Concomitant]
  13. TRACLEER [Suspect]
     Dosage: 62.5 MG, UNK
     Route: 048
     Dates: start: 20110701, end: 20110901
  14. COMBIVENT [Concomitant]
  15. MIRALAX [Concomitant]

REACTIONS (8)
  - CARDIO-RESPIRATORY ARREST [None]
  - ROAD TRAFFIC ACCIDENT [None]
  - PULMONARY CONGESTION [None]
  - OXYGEN SATURATION DECREASED [None]
  - CARDIAC FAILURE CONGESTIVE [None]
  - CERVICAL VERTEBRAL FRACTURE [None]
  - RIB FRACTURE [None]
  - BLOOD ETHANOL INCREASED [None]
